FAERS Safety Report 15316602 (Version 2)
Quarter: 2018Q3

REPORT INFORMATION
  Report Type: Report from Study
  Country: AT (occurrence: AT)
  Receive Date: 20180824
  Receipt Date: 20180913
  Transmission Date: 20181010
  Serious: Yes (Hospitalization)
  Sender: FDA-Public Use
  Company Number: AT-AMGEN-AUTCT2018114466

PATIENT
  Age: 67 Year
  Sex: Female

DRUGS (6)
  1. ANASTROZOLE. [Suspect]
     Active Substance: ANASTROZOLE
     Indication: PRODUCT USED FOR UNKNOWN INDICATION
     Dosage: 1 MG, QD
     Route: 048
  2. SIMVASTAD [Concomitant]
     Dosage: 40 MG, 1/2 PER DAY
     Route: 048
  3. ENAC [Concomitant]
     Dosage: 10 MG, BID
     Route: 048
  4. SPIRONO [Concomitant]
     Dosage: UNK, 1/2 PER DAY
     Route: 048
  5. DILATREND [Concomitant]
     Active Substance: CARVEDILOL
     Dosage: 25 MG, 2 X 1/2 DOSE
     Route: 048
  6. DENOSUMAB [Suspect]
     Active Substance: DENOSUMAB
     Indication: BONE DENSITY DECREASED
     Dosage: 60 MG, Q6MO
     Route: 058
     Dates: start: 20160725

REACTIONS (2)
  - Thoracic vertebral fracture [Recovering/Resolving]
  - Lumbar vertebral fracture [Recovering/Resolving]

NARRATIVE: CASE EVENT DATE: 20180720
